APPROVED DRUG PRODUCT: GLIMEPIRIDE
Active Ingredient: GLIMEPIRIDE
Strength: 1MG
Dosage Form/Route: TABLET;ORAL
Application: A077091 | Product #001 | TE Code: AB
Applicant: DR REDDYS LABORATORIES LTD
Approved: Oct 6, 2005 | RLD: No | RS: Yes | Type: RX